FAERS Safety Report 13864284 (Version 1)
Quarter: 2017Q3

REPORT INFORMATION
  Report Type: Spontaneous
  Country: US (occurrence: None)
  Receive Date: 20170813
  Receipt Date: 20170813
  Transmission Date: 20171127
  Serious: No
  Sender: FDA-Public Use
  Company Number: None

PATIENT
  Age: 22 Year
  Sex: Male

DRUGS (1)
  1. COSENTYX [Suspect]
     Active Substance: SECUKINUMAB
     Indication: ANKYLOSING SPONDYLITIS
     Dosage: FREQUENCY - Q 4 WEEKS
     Route: 058
     Dates: start: 20170209, end: 20170721

REACTIONS (2)
  - Cough [None]
  - Haemoptysis [None]

NARRATIVE: CASE EVENT DATE: 20170726
